FAERS Safety Report 17536941 (Version 10)
Quarter: 2020Q3

REPORT INFORMATION
  Report Type: Spontaneous
  Country: FR (occurrence: FR)
  Receive Date: 20200313
  Receipt Date: 20200923
  Transmission Date: 20201102
  Serious: Yes (Death, Life-Threatening, Hospitalization, Other)
  Sender: FDA-Public Use
  Company Number: NVSC2020FR070565

PATIENT
  Age: 80 Year
  Sex: Male
  Weight: 54 kg

DRUGS (33)
  1. ROCEPHINE [Suspect]
     Active Substance: CEFTRIAXONE SODIUM
     Indication: SEPSIS
     Dosage: UNK
     Route: 048
     Dates: start: 20181202
  2. TIMOFEROL [Concomitant]
     Active Substance: ASCORBIC ACID\FERROUS SULFATE
     Indication: ANAEMIA
     Dosage: 100 MILLIGRAM, DAILY DOSE
     Route: 048
     Dates: start: 201903
  3. KARDEGIC [Suspect]
     Active Substance: ASPIRIN DL-LYSINE
     Indication: CHRONIC MYELOID LEUKAEMIA
     Dosage: 75 MILLIGRAM, DAILY DOSE
     Route: 048
     Dates: start: 201809
  4. CIFLOX [Concomitant]
     Active Substance: CIPROFLOXACIN
     Indication: URINARY TRACT INFECTION
     Dosage: 250 MG, QD (250 MILLIGRAM, DAILY DOSE)
     Route: 048
     Dates: start: 20190317
  5. AMLODIPINE [Concomitant]
     Active Substance: AMLODIPINE BESYLATE
     Indication: HYPERTENSION
     Dosage: 5 MILLIGRAM,DAILY DOSE
     Route: 048
  6. ATORVASTATINE [Concomitant]
     Active Substance: ATORVASTATIN
     Indication: ISCHAEMIC CARDIOMYOPATHY
     Dosage: 40 MG, QD (40 MILLIGRAM, DAILY DOSE)
     Route: 048
  7. PANTOPRAZOLE [Concomitant]
     Active Substance: PANTOPRAZOLE
     Indication: PROPHYLAXIS AGAINST GASTROINTESTINAL ULCER
     Dosage: 20 MILLIGRAM, DAILY DOSE
     Route: 048
  8. AMLODIPINE [Concomitant]
     Active Substance: AMLODIPINE BESYLATE
     Indication: HYPERTENSION
  9. CORDARONE [Concomitant]
     Active Substance: AMIODARONE HYDROCHLORIDE
     Indication: ATRIAL FIBRILLATION
  10. FUROSEMIDE. [Concomitant]
     Active Substance: FUROSEMIDE
     Indication: RENAL FAILURE
     Dosage: 40 MILLIGRAM, DAILY DOSE
     Route: 048
     Dates: start: 20181128
  11. ALLOPURINOL. [Concomitant]
     Active Substance: ALLOPURINOL
     Dosage: 50 MILLIGRAM, DAILY DOSE
     Route: 048
     Dates: start: 20180712
  12. EFFEXOR [Concomitant]
     Active Substance: VENLAFAXINE HYDROCHLORIDE
     Indication: DEPRESSION
     Dosage: 37.5 MILLIGRAM, DAILY DOSE
     Route: 048
     Dates: start: 201903
  13. WARFARIN SODIUM. [Suspect]
     Active Substance: WARFARIN SODIUM
     Indication: ATRIAL FIBRILLATION
     Dosage: 3 MILLIGRAM, QD
     Route: 048
     Dates: start: 20190114, end: 20190326
  14. KARDEGIC [Suspect]
     Active Substance: ASPIRIN DL-LYSINE
     Dosage: 75 MILLIGRAM, DAILY DOSE
     Route: 048
     Dates: start: 20181005
  15. LOVENOX [Suspect]
     Active Substance: ENOXAPARIN SODIUM
     Indication: PRODUCT USED FOR UNKNOWN INDICATION
     Dosage: 40 MG, QD
     Route: 042
     Dates: start: 20180523, end: 20180527
  16. EZETROL [Concomitant]
     Active Substance: EZETIMIBE
     Indication: ISCHAEMIC CARDIOMYOPATHY
     Dosage: 10 MILLIGRAM, DAILY DOSE
     Route: 048
  17. MERONEM [Suspect]
     Active Substance: MEROPENEM
     Indication: URINARY TRACT INFLAMMATION
     Dosage: UNK
     Route: 048
     Dates: start: 20190117, end: 20190207
  18. MERONEM [Suspect]
     Active Substance: MEROPENEM
     Indication: INFLAMMATION
  19. SEROPLEX [Concomitant]
     Active Substance: ESCITALOPRAM OXALATE
     Indication: DEPRESSION
     Dosage: 20 MILLIGRAM, DAILY DOSE
     Route: 048
     Dates: start: 20190214
  20. SEROPLEX [Concomitant]
     Active Substance: ESCITALOPRAM OXALATE
     Indication: DEPRESSION
  21. SYMBICORT [Concomitant]
     Active Substance: BUDESONIDE\FORMOTEROL FUMARATE DIHYDRATE
     Indication: ASTHMA
     Dosage: 200 OTHER, DAILY DOSE
     Route: 050
     Dates: end: 201903
  22. MERONEM [Suspect]
     Active Substance: MEROPENEM
     Indication: INFLAMMATION
  23. TIENAM [Suspect]
     Active Substance: CILASTATIN SODIUM\IMIPENEM
     Indication: INFLAMMATION
  24. PERMIXON [Concomitant]
     Active Substance: HERBALS\SAW PALMETTO
     Indication: BENIGN PROSTATIC HYPERPLASIA
     Dosage: 160 MG, 1X/DAY
     Route: 048
  25. CEFTRIAXONE. [Suspect]
     Active Substance: CEFTRIAXONE
     Indication: INFECTION
     Dosage: 1000 MG, QD (1000 MILLIGRAM)
     Route: 042
     Dates: start: 20190325, end: 20190325
  26. PREVISCAN (FLUINDIONE) [Suspect]
     Active Substance: FLUINDIONE
     Indication: BENIGN PROSTATIC HYPERPLASIA
     Dosage: 20 MG, QD (20 MILLIGRAM, DAILY DOSE)
     Route: 048
     Dates: start: 20180601
  27. TIENAM [Suspect]
     Active Substance: CILASTATIN SODIUM\IMIPENEM
     Indication: URINARY TRACT INFLAMMATION
  28. BISOCE [Concomitant]
     Active Substance: BISOPROLOL
     Indication: ISCHAEMIC CARDIOMYOPATHY
     Dosage: 2.5 MILLIGRAM, DAILY DOSE
     Route: 048
     Dates: start: 20180530
  29. CORDARONE [Concomitant]
     Active Substance: AMIODARONE HYDROCHLORIDE
     Indication: ATRIAL FIBRILLATION
     Dosage: 200 MILLIGRAM, DAILY DOSE
     Route: 048
     Dates: start: 20180530
  30. EFFEXOR [Concomitant]
     Active Substance: VENLAFAXINE HYDROCHLORIDE
     Indication: DEPRESSION
  31. TIENAM [Suspect]
     Active Substance: CILASTATIN SODIUM\IMIPENEM
     Indication: URINARY TRACT INFLAMMATION
     Dosage: UNK
     Route: 065
     Dates: start: 20181218
  32. XATRAL [Concomitant]
     Active Substance: ALFUZOSIN
     Indication: ANXIETY
     Dosage: 10 MG, QD (10 MILLIGRAM, DAILY DOSE)
     Route: 048
  33. ALLOPURINOL. [Concomitant]
     Active Substance: ALLOPURINOL
     Indication: GOUT
     Dosage: 300 MILLIGRAM, QD
     Route: 048
     Dates: start: 20180711

REACTIONS (3)
  - Urosepsis [Recovered/Resolved]
  - General physical health deterioration [Fatal]
  - Normocytic anaemia [Recovered/Resolved]

NARRATIVE: CASE EVENT DATE: 20190325
